FAERS Safety Report 8271577-3 (Version None)
Quarter: 2012Q1

REPORT INFORMATION
  Report Type: 
  Country: None (occurrence: None)
  Receive Date: 20120327
  Receipt Date: 20100121
  Transmission Date: 20120608
  Serious: Yes (Hospitalization)
  Sender: FDA-Public Use
  Company Number: PHEH2009US17629

PATIENT
  Sex: Female

DRUGS (1)
  1. GLEEVEC [Suspect]
     Indication: SARCOMA
     Dosage: 300 MG, QD, ORAL
     Route: 048
     Dates: end: 20090301

REACTIONS (1)
  - DISEASE PROGRESSION [None]
